FAERS Safety Report 4717516-0 (Version None)
Quarter: 2005Q3

REPORT INFORMATION
  Report Type: 
  Country: None (occurrence: None)
  Receive Date: 20050719
  Receipt Date: 20050713
  Transmission Date: 20060218
  Serious: Yes (Hospitalization)
  Sender: FDA-Public Use
  Company Number: US-MERCK-0507USA01840

PATIENT
  Age: 70 Year
  Sex: Female

DRUGS (3)
  1. VIOXX [Suspect]
     Indication: RHEUMATOID ARTHRITIS
     Route: 048
     Dates: start: 20010101
  2. PREDNISONE [Concomitant]
     Route: 065
  3. METHADONE HYDROCHLORIDE [Concomitant]
     Route: 065

REACTIONS (2)
  - CHEST PAIN [None]
  - HEART RATE IRREGULAR [None]
